FAERS Safety Report 5961994-6 (Version None)
Quarter: 2008Q4

REPORT INFORMATION
  Report Type: 
  Country: None (occurrence: None)
  Receive Date: 20081121
  Receipt Date: 20081110
  Transmission Date: 20090506
  Serious: Yes (Death)
  Sender: FDA-Public Use
  Company Number: CA-ROCHE-596514

PATIENT
  Age: 83 Year
  Sex: Male
  Weight: 101 kg

DRUGS (9)
  1. TAMIFLU [Suspect]
     Indication: DRUG USE FOR UNKNOWN INDICATION
     Route: 048
  2. ACETAMINOPHEN [Concomitant]
  3. RESPERIDON [Concomitant]
  4. PLAVIX [Concomitant]
  5. BISACODYL [Concomitant]
  6. SENOKOT [Concomitant]
  7. TYLENOL W/ CODEINE NO. 2 [Concomitant]
  8. LACTULOSE [Concomitant]
  9. TRAZODONE HCL [Concomitant]

REACTIONS (2)
  - DIARRHOEA [None]
  - VOMITING [None]
